FAERS Safety Report 16411519 (Version 1)
Quarter: 2019Q2

REPORT INFORMATION
  Report Type: Report from Study
  Country: US (occurrence: US)
  Receive Date: 20190610
  Receipt Date: 20190610
  Transmission Date: 20190711
  Serious: Yes (Other)
  Sender: FDA-Public Use
  Company Number: US-BAYER-2019-075170

PATIENT
  Age: 46 Year
  Sex: Male

DRUGS (1)
  1. STIVARGA [Suspect]
     Active Substance: REGORAFENIB
     Indication: BLADDER CANCER
     Dosage: 160 MG DAILY
     Dates: start: 20190409

REACTIONS (6)
  - Paraesthesia [None]
  - Neuropathy peripheral [Not Recovered/Not Resolved]
  - Abdominal pain [None]
  - Product use in unapproved indication [None]
  - Back pain [None]
  - Off label use [None]

NARRATIVE: CASE EVENT DATE: 201904
